FAERS Safety Report 5288906-5 (Version None)
Quarter: 2007Q2

REPORT INFORMATION
  Report Type: 
  Country: None (occurrence: None)
  Receive Date: 20070405
  Receipt Date: 20070328
  Transmission Date: 20071010
  Serious: Yes (Hospitalization, Other)
  Sender: FDA-Public Use
  Company Number: JP-PFIZER INC-2006111524

PATIENT
  Sex: Female
  Weight: 49 kg

DRUGS (15)
  1. UNASYN [Suspect]
     Indication: PNEUMONIA
     Route: 042
     Dates: start: 20060828, end: 20060903
  2. BAKTAR [Suspect]
     Route: 048
     Dates: start: 20060905, end: 20060910
  3. BLOPRESS [Suspect]
     Route: 048
     Dates: start: 20060903, end: 20060904
  4. ITOROL [Concomitant]
     Route: 048
  5. ATELEC [Concomitant]
     Route: 048
  6. ARTIST [Concomitant]
     Route: 048
  7. ADALAT [Concomitant]
     Route: 048
  8. ASPIRIN [Concomitant]
     Route: 048
  9. ALFAROL [Concomitant]
     Route: 048
  10. MEVALOTIN [Concomitant]
     Route: 048
  11. CARDENALIN [Concomitant]
     Route: 048
  12. ALDACTAZIDE [Concomitant]
     Route: 048
  13. LASIX [Concomitant]
     Route: 048
  14. ADALAT [Concomitant]
     Route: 048
  15. MAGNESIUM OXIDE [Concomitant]
     Route: 048

REACTIONS (2)
  - RENAL FAILURE ACUTE [None]
  - RENAL IMPAIRMENT [None]
